FAERS Safety Report 6965288-1 (Version None)
Quarter: 2010Q3

REPORT INFORMATION
  Report Type: 
  Country: None (occurrence: None)
  Receive Date: 20100901
  Receipt Date: 20100813
  Transmission Date: 20110219
  Serious: Yes (Hospitalization)
  Sender: FDA-Public Use
  Company Number: JPI-P-011884

PATIENT
  Age: 39 Year
  Sex: Female

DRUGS (7)
  1. XYREM [Suspect]
     Indication: CATAPLEXY
     Dosage: 4.5 GM (2.25 GM, 2 IN 1 D, ORAL); 5 GM (2.5 GM, 2 IN 1 D) ORAL; 9 GM (4.5 GM, 2 IN 1 D) ORAL; 4.5 GM
     Route: 048
     Dates: start: 20070901, end: 20071001
  2. XYREM [Suspect]
     Indication: CATAPLEXY
     Dosage: 4.5 GM (2.25 GM, 2 IN 1 D, ORAL); 5 GM (2.5 GM, 2 IN 1 D) ORAL; 9 GM (4.5 GM, 2 IN 1 D) ORAL; 4.5 GM
     Route: 048
     Dates: start: 20071001, end: 20080101
  3. XYREM [Suspect]
     Indication: CATAPLEXY
     Dosage: 4.5 GM (2.25 GM, 2 IN 1 D, ORAL); 5 GM (2.5 GM, 2 IN 1 D) ORAL; 9 GM (4.5 GM, 2 IN 1 D) ORAL; 4.5 GM
     Route: 048
     Dates: start: 20080101, end: 20080101
  4. XYREM [Suspect]
     Indication: CATAPLEXY
     Dosage: 4.5 GM (2.25 GM, 2 IN 1 D, ORAL); 5 GM (2.5 GM, 2 IN 1 D) ORAL; 9 GM (4.5 GM, 2 IN 1 D) ORAL; 4.5 GM
     Route: 048
     Dates: start: 20090201, end: 20090101
  5. XYREM [Suspect]
     Indication: CATAPLEXY
     Dosage: 4.5 GM (2.25 GM, 2 IN 1 D, ORAL); 5 GM (2.5 GM, 2 IN 1 D) ORAL; 9 GM (4.5 GM, 2 IN 1 D) ORAL; 4.5 GM
     Route: 048
     Dates: start: 20080101, end: 20090201
  6. XYREM [Suspect]
     Indication: CATAPLEXY
     Dosage: 4.5 GM (2.25 GM, 2 IN 1 D, ORAL); 5 GM (2.5 GM, 2 IN 1 D) ORAL; 9 GM (4.5 GM, 2 IN 1 D) ORAL; 4.5 GM
     Route: 048
     Dates: start: 20060101
  7. XYREM [Suspect]
     Indication: CATAPLEXY
     Dosage: 4.5 GM (2.25 GM, 2 IN 1 D, ORAL); 5 GM (2.5 GM, 2 IN 1 D) ORAL; 9 GM (4.5 GM, 2 IN 1 D) ORAL; 4.5 GM
     Route: 048
     Dates: start: 20090101

REACTIONS (23)
  - AUTONOMIC NERVOUS SYSTEM IMBALANCE [None]
  - CHEST PAIN [None]
  - GLOMERULAR FILTRATION RATE DECREASED [None]
  - HOT FLUSH [None]
  - HYPERHIDROSIS [None]
  - HYPOKALAEMIA [None]
  - INITIAL INSOMNIA [None]
  - LABILE BLOOD PRESSURE [None]
  - MIDDLE INSOMNIA [None]
  - MIGRAINE [None]
  - MUSCLE TWITCHING [None]
  - NAUSEA [None]
  - NIGHT SWEATS [None]
  - PAIN [None]
  - PAIN IN JAW [None]
  - POOR QUALITY SLEEP [None]
  - PSORIATIC ARTHROPATHY [None]
  - RHEUMATOID ARTHRITIS [None]
  - SINUS TACHYCARDIA [None]
  - SLEEP APNOEA SYNDROME [None]
  - SYSTEMIC LUPUS ERYTHEMATOSUS [None]
  - VITAMIN D DEFICIENCY [None]
  - WEIGHT INCREASED [None]
